FAERS Safety Report 12239016 (Version 2)
Quarter: 2016Q2

REPORT INFORMATION
  Report Type: Spontaneous
  Country: US (occurrence: US)
  Receive Date: 20160405
  Receipt Date: 20160419
  Transmission Date: 20160815
  Serious: No
  Sender: FDA-Public Use
  Company Number: US-PFIZER INC-2016071905

PATIENT
  Age: 61 Year
  Sex: Male
  Weight: 95.25 kg

DRUGS (4)
  1. XANAX [Suspect]
     Active Substance: ALPRAZOLAM
     Dosage: 1 MG, 4X/DAY
     Route: 048
     Dates: start: 2015
  2. ALPRAZOLAM. [Suspect]
     Active Substance: ALPRAZOLAM
     Dosage: UNK
  3. XANAX [Suspect]
     Active Substance: ALPRAZOLAM
     Indication: ANXIETY
     Dosage: 0.25 MG, UNK
     Route: 048
  4. XANAX [Suspect]
     Active Substance: ALPRAZOLAM
     Dosage: 0.50 MG, UNK
     Route: 048

REACTIONS (10)
  - Headache [Unknown]
  - Asthenia [Unknown]
  - Nausea [Unknown]
  - Drug effect decreased [Unknown]
  - Suspected counterfeit product [Unknown]
  - Psychosomatic disease [Unknown]
  - Drug tolerance increased [Unknown]
  - Malaise [Unknown]
  - Product quality issue [Unknown]
  - Nasopharyngitis [Unknown]
